FAERS Safety Report 8575745-2 (Version None)
Quarter: 2012Q3

REPORT INFORMATION
  Report Type: 
  Country: None (occurrence: None)
  Receive Date: 20120807
  Receipt Date: 20120803
  Transmission Date: 20120928
  Serious: Yes (Other)
  Sender: FDA-Public Use
  Company Number: PHEH2011US00443

PATIENT
  Sex: Female
  Weight: 58.7 kg

DRUGS (14)
  1. EFFEXOR XR [Concomitant]
  2. MYLICON [Concomitant]
  3. RIFAMPICIN [Concomitant]
  4. ENOXAPARIN [Concomitant]
  5. AMBIEN [Concomitant]
  6. BACTRIM [Concomitant]
  7. NALOXONE [Concomitant]
  8. COLACE [Concomitant]
  9. COMPAZINE [Concomitant]
  10. ZOFRAN [Concomitant]
  11. MORPHINE SULFATE [Concomitant]
  12. FAMOTIDINE [Concomitant]
  13. OXYCONTIN [Concomitant]
  14. ZOMETA [Suspect]
     Indication: BREAST CANCER
     Route: 042
     Dates: start: 20060301, end: 20080101

REACTIONS (35)
  - CORNEAL ABRASION [None]
  - EXPOSED BONE IN JAW [None]
  - OVARIAN CYST [None]
  - INSOMNIA [None]
  - CARDIAC MURMUR [None]
  - MULTIPLE INJURIES [None]
  - ANHEDONIA [None]
  - CONJUNCTIVITIS ALLERGIC [None]
  - GINGIVAL ABSCESS [None]
  - BUNION [None]
  - PAIN IN JAW [None]
  - PAIN [None]
  - HEPATIC CYST [None]
  - RHEUMATOID ARTHRITIS [None]
  - EXOSTOSIS [None]
  - LEIOMYOMA [None]
  - NEURALGIA [None]
  - NAIL INJURY [None]
  - VULVOVAGINAL DRYNESS [None]
  - OSTEONECROSIS OF JAW [None]
  - HAEMORRHAGE [None]
  - SINUS BRADYCARDIA [None]
  - ABDOMINAL PAIN [None]
  - OSTEOPENIA [None]
  - VAGINAL HAEMORRHAGE [None]
  - LYMPHADENOPATHY [None]
  - ANXIETY [None]
  - HOT FLUSH [None]
  - MIGRAINE [None]
  - BLEPHARITIS [None]
  - SEASONAL ALLERGY [None]
  - WEIGHT INCREASED [None]
  - CYST [None]
  - FATIGUE [None]
  - DEPRESSION [None]
